FAERS Safety Report 16337206 (Version 1)
Quarter: 2019Q2

REPORT INFORMATION
  Report Type: Spontaneous
  Country: US (occurrence: US)
  Receive Date: 20190520
  Receipt Date: 20190520
  Transmission Date: 20190711
  Serious: Yes (Other)
  Sender: FDA-Public Use
  Company Number: None

PATIENT
  Age: 53 Year
  Sex: Female
  Weight: 63 kg

DRUGS (13)
  1. SODIUM CHLORIDE. [Concomitant]
     Active Substance: SODIUM CHLORIDE
  2. MILK OF MAGNESIA [Concomitant]
     Active Substance: MAGNESIUM HYDROXIDE
  3. COREG [Concomitant]
     Active Substance: CARVEDILOL
  4. BRAFTOVI [Suspect]
     Active Substance: ENCORAFENIB
     Indication: MALIGNANT MELANOMA
     Route: 048
     Dates: start: 20190422, end: 20190520
  5. COLACE [Concomitant]
     Active Substance: DOCUSATE SODIUM
  6. SENOKOT [Concomitant]
     Active Substance: SENNOSIDES
  7. OXYCODONE [Concomitant]
     Active Substance: OXYCODONE
  8. SENOKOT [Concomitant]
     Active Substance: SENNOSIDES
  9. MEKTOVI [Suspect]
     Active Substance: BINIMETINIB
     Indication: MALIGNANT MELANOMA
     Route: 048
     Dates: start: 20190425, end: 20190520
  10. LIDODERM [Concomitant]
     Active Substance: LIDOCAINE
  11. NEURONTIN [Concomitant]
     Active Substance: GABAPENTIN
  12. PEPCID [Concomitant]
     Active Substance: FAMOTIDINE
  13. NORVASC [Concomitant]
     Active Substance: AMLODIPINE BESYLATE

REACTIONS (1)
  - Hospice care [None]

NARRATIVE: CASE EVENT DATE: 20190520
